FAERS Safety Report 4283982-0 (Version None)
Quarter: 2004Q1

REPORT INFORMATION
  Report Type: 
  Country: None (occurrence: None)
  Receive Date: 20040203
  Receipt Date: 20040127
  Transmission Date: 20041129
  Serious: Yes (Other)
  Sender: FDA-Public Use
  Company Number: US-BRISTOL-MYERS SQUIBB COMPANY-12493128

PATIENT
  Sex: Female

DRUGS (13)
  1. SERZONE [Suspect]
     Route: 048
     Dates: start: 19990805, end: 20020201
  2. PRILOSEC [Concomitant]
  3. BUSPAR [Concomitant]
  4. SOMA [Concomitant]
  5. ASPIRIN [Concomitant]
  6. TIMOLOL MALEATE [Concomitant]
  7. ALLERGAN [Concomitant]
  8. ESTROGEN [Concomitant]
  9. HYDROCODONE BITARTRATE [Concomitant]
  10. PEPCID [Concomitant]
  11. ALPRAZOLAM [Concomitant]
  12. CLARITIN [Concomitant]
  13. ACIPHEX [Concomitant]

REACTIONS (4)
  - CHEST PAIN [None]
  - GASTRITIS [None]
  - HEADACHE [None]
  - HEPATITIS C [None]
